FAERS Safety Report 4356630-9 (Version None)
Quarter: 2004Q2

REPORT INFORMATION
  Report Type: 
  Country: None (occurrence: None)
  Receive Date: 20040512
  Receipt Date: 20040319
  Transmission Date: 20050107
  Serious: Yes (Hospitalization, Other)
  Sender: FDA-Public Use
  Company Number: US-AMGEN-US068719

PATIENT
  Sex: Female
  Weight: 49.5 kg

DRUGS (8)
  1. EPOGEN [Suspect]
     Indication: DIALYSIS
     Route: 058
     Dates: start: 20021220
  2. LEVOCARNITINE [Concomitant]
     Dates: start: 20040121
  3. RENAGEL [Concomitant]
     Dates: start: 20020215
  4. SPORANOX [Concomitant]
     Dates: start: 20020215
  5. LOPRESSOR [Concomitant]
     Dates: start: 20031210
  6. LOTENSIN [Concomitant]
     Dates: start: 20031217
  7. AMBIEN [Concomitant]
     Dates: start: 20031217
  8. CLONIDINE HCL [Concomitant]
     Route: 061

REACTIONS (10)
  - BLOOD ALBUMIN DECREASED [None]
  - BONE MARROW DEPRESSION [None]
  - CONVULSION [None]
  - GLYCOSYLATED HAEMOGLOBIN INCREASED [None]
  - HAEMOGLOBIN DECREASED [None]
  - HAEMOGLOBIN S INCREASED [None]
  - HYPERTENSION [None]
  - SERUM FERRITIN INCREASED [None]
  - SYNCOPE [None]
  - THERAPEUTIC RESPONSE DECREASED [None]
